FAERS Safety Report 9669393 (Version 1)
Quarter: 2013Q4

REPORT INFORMATION
  Report Type: Spontaneous
  Country: GB (occurrence: None)
  Receive Date: 20131101
  Receipt Date: 20131101
  Transmission Date: 20140711
  Serious: Yes (Other)
  Sender: FDA-Public Use
  Company Number: 2013-003352

PATIENT
  Age: 46 Year
  Sex: Male

DRUGS (3)
  1. ASACOL [Suspect]
     Route: 054
     Dates: start: 20130223, end: 20130626
  2. ASPIRIN (ACTYLSALICYLIC ACID) [Concomitant]
     Route: 054
  3. SIMVASTATIN (SIMVASTATIN) [Concomitant]

REACTIONS (1)
  - Drug reaction with eosinophilia and systemic symptoms [None]
